FAERS Safety Report 6110099-2 (Version None)
Quarter: 2009Q1

REPORT INFORMATION
  Report Type: 
  Country: None (occurrence: None)
  Receive Date: 20090310
  Receipt Date: 20090302
  Transmission Date: 20090719
  Serious: Yes (Disabling, Other)
  Sender: FDA-Public Use
  Company Number: US-MERCK-0812USA02132

PATIENT
  Age: 77 Year
  Sex: Female

DRUGS (3)
  1. FOSAMAX [Suspect]
     Route: 048
     Dates: start: 20030101
  2. FOSAMAX [Suspect]
     Route: 048
     Dates: start: 19960101
  3. FOSAMAX [Suspect]
     Route: 048
     Dates: start: 20030101, end: 20070701

REACTIONS (3)
  - JAW DISORDER [None]
  - OSTEOMYELITIS [None]
  - OSTEONECROSIS [None]
